FAERS Safety Report 18327335 (Version 2)
Quarter: 2020Q4

REPORT INFORMATION
  Report Type: Report from Study
  Country: None (occurrence: US)
  Receive Date: 20200930
  Receipt Date: 20201220
  Transmission Date: 20210113
  Serious: Yes (Other)
  Sender: FDA-Public Use
  Company Number: US-ABBVIE-20K-163-3280792-00

PATIENT
  Sex: Female

DRUGS (1)
  1. HUMIRA [Suspect]
     Active Substance: ADALIMUMAB
     Indication: RHEUMATOID ARTHRITIS
     Dosage: CITRATE FREE
     Route: 058

REACTIONS (7)
  - Spinal operation [Unknown]
  - Herpes zoster [Unknown]
  - Insomnia [Unknown]
  - Eye operation [Unknown]
  - Cataract [Unknown]
  - Glaucoma [Unknown]
  - Pruritus [Unknown]

NARRATIVE: CASE EVENT DATE: 2020
